FAERS Safety Report 4792421-2 (Version None)
Quarter: 2005Q4

REPORT INFORMATION
  Report Type: 
  Country: None (occurrence: None)
  Receive Date: 20051010
  Receipt Date: 20050927
  Transmission Date: 20060501
  Serious: Yes (Other)
  Sender: FDA-Public Use
  Company Number: PHEH2005US10778

PATIENT
  Age: 62 Year
  Sex: Female

DRUGS (2)
  1. AREDIA [Suspect]
     Indication: MULTIPLE MYELOMA
     Dosage: 90 MG, UNK
     Route: 042
     Dates: start: 20000401, end: 20050601
  2. ZOMETA [Suspect]

REACTIONS (7)
  - BONE DISORDER [None]
  - ORAL SOFT TISSUE DISORDER [None]
  - OSTEOMYELITIS [None]
  - OSTEONECROSIS [None]
  - PARAESTHESIA [None]
  - PURULENT DISCHARGE [None]
  - TOOTH EXTRACTION [None]
